APPROVED DRUG PRODUCT: FABIOR
Active Ingredient: TAZAROTENE
Strength: 0.1%
Dosage Form/Route: AEROSOL, FOAM;TOPICAL
Application: N202428 | Product #001
Applicant: MAYNE PHARMA LLC
Approved: May 11, 2012 | RLD: Yes | RS: Yes | Type: RX

PATENTS:
Patent 10568859 | Expires: Feb 24, 2030
Patent 10688071 | Expires: Feb 24, 2030
Patent 8808716 | Expires: Feb 24, 2030